FAERS Safety Report 15470608 (Version 1)
Quarter: 2018Q4

REPORT INFORMATION
  Report Type: Spontaneous
  Country: US (occurrence: US)
  Receive Date: 20181005
  Receipt Date: 20181005
  Transmission Date: 20190205
  Serious: No
  Sender: FDA-Public Use
  Company Number: US-009507513-1810USA002238

PATIENT
  Age: 11 Year
  Sex: Male

DRUGS (7)
  1. SINGULAIR [Concomitant]
     Active Substance: MONTELUKAST SODIUM
  2. ASMANEX [Suspect]
     Active Substance: MOMETASONE FUROATE
     Indication: ASTHMA
     Dosage: 1 DF, QD
     Route: 055
     Dates: start: 2017
  3. ALBUTEROL. [Concomitant]
     Active Substance: ALBUTEROL
  4. EPIPEN [Concomitant]
     Active Substance: EPINEPHRINE
  5. NASONEX [Concomitant]
     Active Substance: MOMETASONE FUROATE
  6. ZADITOR [Concomitant]
     Active Substance: KETOTIFEN FUMARATE
  7. CLARITIN [Concomitant]
     Active Substance: LORATADINE

REACTIONS (3)
  - No adverse event [Unknown]
  - Product availability issue [Not Recovered/Not Resolved]
  - Product dose omission [Not Recovered/Not Resolved]

NARRATIVE: CASE EVENT DATE: 20180908
